FAERS Safety Report 12198120 (Version 1)
Quarter: 2016Q1

REPORT INFORMATION
  Report Type: Spontaneous
  Country: US (occurrence: US)
  Receive Date: 20160322
  Receipt Date: 20160322
  Transmission Date: 20160526
  Serious: No
  Sender: FDA-Public Use
  Company Number: US-JNJFOC-20160124574

PATIENT
  Sex: Female

DRUGS (1)
  1. STELARA [Suspect]
     Active Substance: USTEKINUMAB
     Indication: PRODUCT USED FOR UNKNOWN INDICATION
     Route: 058
     Dates: start: 20160125

REACTIONS (4)
  - Adverse drug reaction [Unknown]
  - Dysphemia [Unknown]
  - Blood glucose increased [Unknown]
  - Swelling [Unknown]

NARRATIVE: CASE EVENT DATE: 20160125
